FAERS Safety Report 20696533 (Version 1)
Quarter: 2022Q2

REPORT INFORMATION
  Report Type: Report from Study
  Country: US (occurrence: US)
  Receive Date: 20220411
  Receipt Date: 20220411
  Transmission Date: 20220721
  Serious: Yes (Hospitalization)
  Sender: FDA-Public Use
  Company Number: US-TRAVERE-2021TVT00648

PATIENT
  Age: 20 Year
  Sex: Male

DRUGS (1)
  1. CHOLBAM [Suspect]
     Active Substance: CHOLIC ACID
     Indication: Refsum^s disease
     Route: 048
     Dates: start: 20211006

REACTIONS (3)
  - Weight decreased [Unknown]
  - Liver disorder [Unknown]
  - Abdominal pain [Unknown]
